FAERS Safety Report 10241307 (Version 1)
Quarter: 2014Q1

REPORT INFORMATION
  Report Type: Spontaneous
  Country: US (occurrence: None)
  Receive Date: 20140306
  Receipt Date: 20140306
  Transmission Date: 20141002
  Serious: Yes (Other)
  Sender: FDA-Public Use
  Company Number: 163-21880-13043282

PATIENT
  Age: 58 Year
  Sex: Female
  Weight: 68.6 kg

DRUGS (21)
  1. REVLIMID (LENALIDOMIDE) (25 MILLIGRAM, CAPSULES) [Suspect]
     Indication: PLASMA CELL MYELOMA
     Route: 048
     Dates: start: 200901
  2. ACYCLOVIR (ACICLOVIR) (UNKNOWN) [Concomitant]
  3. ALPRAZOLAM (ALPRAZOLAM) (UNKNOWN) (ALPRAZOLAM) [Concomitant]
  4. ASPIRIN (ACETYLSALICYLIC ACID) (UNKNOWN) (ACETYLSALICYLIC ACID) [Concomitant]
  5. DIPHENOXYLATE/ATROPINE (LOMOTIL) (UNKNOWN) [Concomitant]
  6. CARISOPRODOL (CARISOPRODOL) (UNKNOWN) [Concomitant]
  7. CETIRIZINE (CETIRIZINE) (UNKNOWN) [Concomitant]
  8. CODEINE (CODEINE) (UNKNOWN) (CODEINE) [Concomitant]
  9. FLUTICASONE NS (FLUTICASONE) [Concomitant]
  10. LISINOPRIL (LISINOPRIL) (UNKNOWN) [Concomitant]
  11. LOPERAMIDE (LOPERAMIDE) (UNKNOWN) [Concomitant]
  12. LORATADINE (LORATADINE) (UNKNOWN) [Concomitant]
  13. MIRTAZAPINE (MIRTAZAPINE) (UNKNOWN) [Concomitant]
  14. OXYCODONE (OXYCODONE) (UNKNOWN) (OXYCODONE) [Concomitant]
  15. PANTOPRAZOLE (PANTOPRAZOLE) (UNKNOWN) [Concomitant]
  16. ONDANSETRON (ONDANSETRON) (UNKNOWN) [Concomitant]
  17. PENTAMIDINE (PENTAMIDINE) (INHALANT) [Concomitant]
  18. PROCHLORPERAZINE (PROCHLORPERAZINE) (UNKNOWN) [Concomitant]
  19. PROMETHAZINE (PROMETHAZINE) (UNKNOWN) [Concomitant]
  20. SERTRALINE (SERTRALINE) (UNKNOWN) [Concomitant]
  21. IVIG (IMMUNOGLOBULIN) (UNKNOWN) [Concomitant]

REACTIONS (1)
  - Neutropenia [None]
